FAERS Safety Report 4877574-X (Version None)
Quarter: 2006Q1

REPORT INFORMATION
  Report Type: 
  Country: None (occurrence: None)
  Receive Date: 20060111
  Receipt Date: 20060103
  Transmission Date: 20060701
  Serious: Yes (Hospitalization)
  Sender: FDA-Public Use
  Company Number: IT-GLAXOSMITHKLINE-B0405727A

PATIENT
  Age: 53 Year
  Sex: Female

DRUGS (3)
  1. AUGMENTIN '125' [Suspect]
     Indication: TONSILLITIS
     Dosage: 2G PER DAY
     Route: 048
     Dates: start: 20051026, end: 20051028
  2. CORTICOSTEROIDS (UNSPECIFIED) [Concomitant]
     Indication: ADVERSE EVENT
     Route: 065
  3. ANTIHISTAMINE [Concomitant]
     Indication: ADVERSE EVENT
     Route: 065

REACTIONS (2)
  - DYSPHAGIA [None]
  - ERYTHEMA [None]
